FAERS Safety Report 4318463-9 (Version None)
Quarter: 2004Q1

REPORT INFORMATION
  Report Type: 
  Country: None (occurrence: None)
  Receive Date: 20040317
  Receipt Date: 20040317
  Transmission Date: 20041129
  Serious: Yes (Hospitalization)
  Sender: FDA-Public Use
  Company Number: None

PATIENT
  Age: 50 Year
  Sex: Female

DRUGS (3)
  1. CARBAMAZEPINE [Suspect]
     Indication: MULTIPLE SCLEROSIS
     Dosage: PO
     Route: 048
     Dates: start: 20030715, end: 20030722
  2. METHOTREXATE [Concomitant]
  3. BACLOFEN [Concomitant]

REACTIONS (1)
  - PANCYTOPENIA [None]
